FAERS Safety Report 7742063-1 (Version None)
Quarter: 2011Q3

REPORT INFORMATION
  Report Type: 
  Country: None (occurrence: None)
  Receive Date: 20110912
  Receipt Date: 20110901
  Transmission Date: 20111222
  Serious: Yes (Death, Hospitalization, Other)
  Sender: FDA-Public Use
  Company Number: PHHY2011DE16705

PATIENT
  Sex: Male
  Weight: 82.086 kg

DRUGS (16)
  1. EXJADE [Suspect]
     Indication: MYELODYSPLASTIC SYNDROME
     Dosage: 500 MG, DAILY
     Route: 048
     Dates: start: 20100916, end: 20110301
  2. SIMVASTATIN [Concomitant]
     Dosage: 40 MG, DAILY
     Route: 048
  3. TAMSULOSIN HCL [Concomitant]
     Dosage: 0.4 MG, DAILY
     Route: 048
  4. METOPROLOL SUCCINATE [Concomitant]
     Dosage: 47.5 MG, DAILY
     Route: 048
  5. INSPRA [Concomitant]
     Dosage: 25 MG, DAILY
     Route: 048
  6. ACETYLCYSTEINE [Concomitant]
     Dosage: 400 MG, DAILY
     Route: 048
  7. INSUMAN RAPID [Concomitant]
     Dosage: 6IE/DAY
     Route: 058
  8. TORSEMIDE [Concomitant]
     Dosage: 30 MG, DAILY
     Route: 048
  9. CLOPIDOGREL BISULFATE [Concomitant]
     Dosage: 75 MG, DAILY
     Route: 048
  10. MYOCHOLINE [Concomitant]
  11. ASPIRIN [Concomitant]
     Dosage: 100 MG, DAILY
     Route: 048
  12. RAMIPRIL DURA PLUS [Concomitant]
     Dosage: 1.25 MG, DAILY
     Route: 048
  13. IBUPROFEN [Concomitant]
     Dosage: 3200 MG, DAILY
     Route: 048
  14. LEVEMIR [Concomitant]
     Dosage: 20 IE/DAY
     Route: 058
  15. KALINOR RETARD [Concomitant]
     Dosage: 1800 MG, DAILY
     Route: 048
  16. PANTOPRAZOLE [Concomitant]
     Dosage: 20 MG, DAILY
     Route: 048

REACTIONS (10)
  - THROMBOCYTOPENIA [None]
  - GOUT [None]
  - ANAEMIA [None]
  - CARDIAC FAILURE [None]
  - DEATH [None]
  - GENERAL PHYSICAL HEALTH DETERIORATION [None]
  - PNEUMONIA [None]
  - DYSPNOEA AT REST [None]
  - HAEMOGLOBIN DECREASED [None]
  - ACUTE MYELOID LEUKAEMIA [None]
